FAERS Safety Report 21106271 (Version 2)
Quarter: 2022Q3

REPORT INFORMATION
  Report Type: Spontaneous
  Country: US (occurrence: US)
  Receive Date: 20220720
  Receipt Date: 20220923
  Transmission Date: 20221026
  Serious: Yes (Disabling)
  Sender: FDA-Public Use
  Company Number: US-SANOFI-01188786

PATIENT
  Age: 84 Year
  Sex: Female

DRUGS (3)
  1. LANTUS [Suspect]
     Active Substance: INSULIN GLARGINE
     Indication: Type 2 diabetes mellitus
     Dosage: 45 IU, QD
     Dates: start: 2005
  2. LANTUS [Suspect]
     Active Substance: INSULIN GLARGINE
     Dosage: 40 IU, QD
  3. METFORMIN [Suspect]
     Active Substance: METFORMIN HYDROCHLORIDE

REACTIONS (13)
  - Joint prosthesis user [Not Recovered/Not Resolved]
  - Peripheral swelling [Not Recovered/Not Resolved]
  - Dyspnoea [Not Recovered/Not Resolved]
  - Fat redistribution [Not Recovered/Not Resolved]
  - Pain [Not Recovered/Not Resolved]
  - Blood pressure abnormal [Not Recovered/Not Resolved]
  - Tremor [Unknown]
  - Osteoarthritis [Unknown]
  - Dysgraphia [Unknown]
  - Weight decreased [Unknown]
  - Muscle spasticity [Unknown]
  - Arthralgia [Not Recovered/Not Resolved]
  - Knee operation [Unknown]

NARRATIVE: CASE EVENT DATE: 20050101
